FAERS Safety Report 8465634-6 (Version None)
Quarter: 2012Q2

REPORT INFORMATION
  Report Type: 
  Country: None (occurrence: None)
  Receive Date: 20120626
  Receipt Date: 20120619
  Transmission Date: 20120825
  Serious: Yes (Other)
  Sender: FDA-Public Use
  Company Number: US-BAYER-2012-009175

PATIENT
  Age: 42 Year
  Sex: Female
  Weight: 79.365 kg

DRUGS (21)
  1. ATIVAN [Concomitant]
     Dosage: 0.5 MG, UNK
     Dates: start: 20100226
  2. SINGULAIR [Concomitant]
     Dosage: 10 MG, UNK
     Dates: start: 20100226
  3. AMITRIPTYLINE HCL [Concomitant]
     Dosage: 10 MG, UNK
     Dates: start: 20090921, end: 20091202
  4. TRAMADOL HCL [Concomitant]
     Dosage: 50 MG, UNK
     Dates: start: 20100201
  5. PROTONIX [Concomitant]
     Indication: GASTROOESOPHAGEAL REFLUX DISEASE
     Dosage: 40 MG, UNK
     Dates: start: 20100226
  6. THEOPHYLLINE [Concomitant]
     Dosage: 200 MG, UNK
     Dates: start: 20100226
  7. ALBUTEROL [Concomitant]
     Dosage: UNK UNK, PRN
     Dates: start: 20100226
  8. YASMIN [Suspect]
     Indication: CONTRACEPTION
     Dosage: UNK
     Route: 048
     Dates: start: 20030101, end: 20100225
  9. FLOVENT [Concomitant]
     Dosage: UNK UNK, BID
     Dates: start: 20100226
  10. PREDNISONE [Concomitant]
     Indication: ASTHMA
  11. BIAXIN [Concomitant]
     Dosage: 500 MG, UNK
     Dates: start: 20100226
  12. VICODIN [Concomitant]
     Dosage: UNK
     Dates: start: 20100226
  13. MECLIZINE [Concomitant]
     Dosage: 25 MG, UNK
     Dates: start: 20100131
  14. ALLEGRA [Concomitant]
     Dosage: 180 MG, UNK
     Dates: start: 20100226
  15. ACETAMINOPHEN [Concomitant]
     Indication: PAIN
     Dosage: UNK UNK, PRN
  16. FLEXERIL [Concomitant]
  17. DROSPIRENONE AND ETHINYL ESTRADIOL [Suspect]
     Indication: CONTRACEPTION
     Dosage: UNK
     Route: 048
     Dates: start: 20030101, end: 20100225
  18. SEREVANT INHALER [Concomitant]
     Dosage: UNK UNK, BID
     Dates: start: 20100226
  19. CYCLOBENZAPRINE [Concomitant]
     Dosage: 10 MG, UNK
     Dates: start: 20100126
  20. MULTI-VITAMIN [Concomitant]
     Dosage: UNK UNK, QD
     Dates: start: 20100226
  21. ASCORBIC ACID [Concomitant]
     Dosage: DAILY

REACTIONS (6)
  - MENTAL DISORDER [None]
  - SCAR [None]
  - HAEMARTHROSIS [None]
  - DEEP VEIN THROMBOSIS [None]
  - INJURY [None]
  - DEPRESSION [None]
